FAERS Safety Report 6242423-4 (Version None)
Quarter: 2009Q2

REPORT INFORMATION
  Report Type: 
  Country: None (occurrence: None)
  Receive Date: 20090622
  Receipt Date: 20090622
  Transmission Date: 20091009
  Serious: Yes (Other)
  Sender: FDA-Public Use
  Company Number: None

PATIENT
  Age: 63 Year
  Sex: Female
  Weight: 57.6068 kg

DRUGS (1)
  1. ZICAM ORAL MIST ZICAM LLC [Suspect]
     Indication: NASOPHARYNGITIS
     Dosage: 4 SPRAYS EVERY 3 HOURS PO
     Route: 048
     Dates: start: 20090604, end: 20090611

REACTIONS (2)
  - AGEUSIA [None]
  - NAUSEA [None]
